FAERS Safety Report 7333459-0 (Version None)
Quarter: 2011Q1

REPORT INFORMATION
  Report Type: 
  Country: None (occurrence: None)
  Receive Date: 20110304
  Receipt Date: 20110302
  Transmission Date: 20110831
  Serious: Yes (Life-Threatening)
  Sender: FDA-Public Use
  Company Number: PHHY2011US16583

PATIENT
  Sex: Female

DRUGS (3)
  1. VITAMIN D [Concomitant]
     Dosage: UNK
  2. CALCIUM [Concomitant]
     Dosage: UNK
  3. RECLAST [Suspect]
     Dosage: 5 MG/100 ML ONCE YEARLY
     Dates: start: 20101202

REACTIONS (4)
  - VITAMIN D INCREASED [None]
  - PARAESTHESIA [None]
  - PAIN IN EXTREMITY [None]
  - BALANCE DISORDER [None]
